FAERS Safety Report 13428225 (Version 2)
Quarter: 2017Q2

REPORT INFORMATION
  Report Type: Spontaneous
  Country: HU (occurrence: HU)
  Receive Date: 20170411
  Receipt Date: 20170428
  Transmission Date: 20170830
  Serious: Yes (Hospitalization, Other)
  Sender: FDA-Public Use
  Company Number: HU-JNJFOC-20160116914

PATIENT

DRUGS (4)
  1. RISPERIDONE. [Suspect]
     Active Substance: RISPERIDONE
     Indication: SCHIZOPHRENIA
     Dosage: DOSE 3MG, 4 MG AND 6 MG PER DAY ACCORDING TO THE PRODUCT LABELS
     Route: 065
  2. RISPERIDONE. [Suspect]
     Active Substance: RISPERIDONE
     Indication: SCHIZOPHRENIA
     Dosage: DAY 7 TO 13
     Route: 065
  3. RISPERIDONE. [Suspect]
     Active Substance: RISPERIDONE
     Indication: SCHIZOPHRENIA
     Dosage: DAY ZERO
     Route: 065
  4. RISPERIDONE. [Suspect]
     Active Substance: RISPERIDONE
     Indication: SCHIZOPHRENIA
     Dosage: DAY 14; TARGET DOSE
     Route: 065

REACTIONS (20)
  - Nausea [Unknown]
  - Suicidal ideation [Unknown]
  - Hypertension [Unknown]
  - Adverse event [Unknown]
  - Extrapyramidal disorder [Unknown]
  - Akathisia [Unknown]
  - Anxiety [Unknown]
  - Schizophrenia [Unknown]
  - Orthostatic hypotension [Unknown]
  - Cogwheel rigidity [Unknown]
  - Nasopharyngitis [Unknown]
  - Restlessness [Unknown]
  - Treatment noncompliance [Unknown]
  - Parkinsonism [Unknown]
  - Insomnia [Unknown]
  - Drug ineffective [Unknown]
  - Headache [Unknown]
  - Fatigue [Unknown]
  - Dizziness [Unknown]
  - Somnolence [Unknown]
